FAERS Safety Report 7307111-1 (Version None)
Quarter: 2011Q1

REPORT INFORMATION
  Report Type: 
  Country: None (occurrence: None)
  Receive Date: 20110223
  Receipt Date: 20110211
  Transmission Date: 20110831
  Serious: No
  Sender: FDA-Public Use
  Company Number: US-BIOGENIDEC-2011BI006140

PATIENT
  Age: 50 Year
  Sex: Male

DRUGS (1)
  1. TYSABRI [Suspect]
     Indication: MULTIPLE SCLEROSIS
     Route: 042
     Dates: start: 20071227

REACTIONS (5)
  - HEADACHE [None]
  - PAIN IN EXTREMITY [None]
  - INFECTION [None]
  - MUSCULOSKELETAL DISORDER [None]
  - WHITE BLOOD CELL COUNT INCREASED [None]
